FAERS Safety Report 19901258 (Version 1)
Quarter: 2021Q3

REPORT INFORMATION
  Report Type: Report from Study
  Country: US (occurrence: US)
  Receive Date: 20210930
  Receipt Date: 20210930
  Transmission Date: 20211014
  Serious: No
  Sender: FDA-Public Use
  Company Number: NVSC2021US220557

PATIENT
  Sex: Female

DRUGS (1)
  1. TASIGNA [Suspect]
     Active Substance: NILOTINIB
     Indication: CARCINOEMBRYONIC ANTIGEN
     Dosage: UNK, UNKNOWN
     Route: 055

REACTIONS (2)
  - Product dose omission issue [Unknown]
  - Vomiting [Unknown]
